FAERS Safety Report 12853005 (Version 1)
Quarter: 2016Q4

REPORT INFORMATION
  Report Type: Spontaneous
  Country: US (occurrence: US)
  Receive Date: 20161016
  Receipt Date: 20161016
  Transmission Date: 20170207
  Serious: Yes (Hospitalization)
  Sender: FDA-Public Use
  Company Number: None

PATIENT
  Age: 50 Year
  Sex: Male
  Weight: 92.25 kg

DRUGS (9)
  1. METHOTREXATE. [Concomitant]
     Active Substance: METHOTREXATE
  2. SAW PALMETTO [Concomitant]
     Active Substance: SAW PALMETTO
  3. DULOXETINE DELAYED-RELEASE CAPSU CITRON PHARMA [Suspect]
     Active Substance: DULOXETINE
     Indication: NEURALGIA
     Dosage: ?          QUANTITY:16 CAPSULE(S);?
     Route: 048
     Dates: start: 20160922, end: 20161009
  4. MAGNESIUM [Concomitant]
     Active Substance: MAGNESIUM
  5. FOLIC ACID. [Concomitant]
     Active Substance: FOLIC ACID
  6. FOLIC ACID. [Concomitant]
     Active Substance: FOLIC ACID
  7. TEMAZEPAM. [Concomitant]
     Active Substance: TEMAZEPAM
  8. ADDERALL [Concomitant]
     Active Substance: AMPHETAMINE ASPARTATE\AMPHETAMINE SULFATE\DEXTROAMPHETAMINE SACCHARATE\DEXTROAMPHETAMINE SULFATE
  9. DEPAKOTE [Concomitant]
     Active Substance: DIVALPROEX SODIUM

REACTIONS (7)
  - Hallucination [None]
  - Agitation [None]
  - Disturbance in attention [None]
  - Photophobia [None]
  - Insomnia [None]
  - Memory impairment [None]
  - Somnolence [None]

NARRATIVE: CASE EVENT DATE: 20161012
